FAERS Safety Report 19531677 (Version 2)
Quarter: 2021Q3

REPORT INFORMATION
  Report Type: Report from Study
  Country: CA (occurrence: CA)
  Receive Date: 20210713
  Receipt Date: 20210723
  Transmission Date: 20211014
  Serious: Yes (Hospitalization)
  Sender: FDA-Public Use
  Company Number: CA-BAYER-2021-119071

PATIENT
  Age: 91 Year
  Sex: Male

DRUGS (1)
  1. NUBEQA [Suspect]
     Active Substance: DAROLUTAMIDE
     Indication: HORMONE-REFRACTORY PROSTATE CANCER
     Dosage: 600 MG, BID
     Route: 048
     Dates: start: 20210310

REACTIONS (7)
  - Illness [None]
  - Diarrhoea [None]
  - Back pain [None]
  - Fatigue [Not Recovered/Not Resolved]
  - Failure to thrive [None]
  - Decreased appetite [Not Recovered/Not Resolved]
  - Weight decreased [Not Recovered/Not Resolved]

NARRATIVE: CASE EVENT DATE: 20210310
